FAERS Safety Report 7138834-5 (Version None)
Quarter: 2010Q4

REPORT INFORMATION
  Report Type: 
  Country: None (occurrence: None)
  Receive Date: 20101206
  Receipt Date: 20101129
  Transmission Date: 20110411
  Serious: Yes (Hospitalization)
  Sender: FDA-Public Use
  Company Number: DE-CEPHALON-2010006299

PATIENT
  Age: 47 Year
  Sex: Male
  Weight: 100 kg

DRUGS (6)
  1. TREANDA [Suspect]
     Route: 042
     Dates: start: 20100909, end: 20100910
  2. RITUXIMAB [Suspect]
     Route: 042
     Dates: start: 20100908
  3. RAMIPRIL [Concomitant]
  4. NEBIVOLOL [Concomitant]
  5. PANTOZOL [Concomitant]
  6. ALLOPURINOL [Concomitant]
     Dates: start: 20100916, end: 20100921

REACTIONS (2)
  - FEBRILE BONE MARROW APLASIA [None]
  - INFECTION [None]
